FAERS Safety Report 4821829-1 (Version None)
Quarter: 2005Q4

REPORT INFORMATION
  Report Type: 
  Country: None (occurrence: None)
  Receive Date: 20051102
  Receipt Date: 20051019
  Transmission Date: 20060501
  Serious: Yes (Hospitalization, Other)
  Sender: FDA-Public Use
  Company Number: EWC051046613

PATIENT
  Age: 65 Year
  Sex: Female

DRUGS (2)
  1. EVISTA [Suspect]
     Indication: SPINAL DISORDER
     Dosage: 60 MG
     Dates: start: 20041222, end: 20051019
  2. MAXI-KALZ (CALCIUM CITRATE) [Concomitant]

REACTIONS (2)
  - EYE DISORDER [None]
  - THROMBOSIS [None]
